FAERS Safety Report 8930405 (Version 1)
Quarter: 2012Q4

REPORT INFORMATION
  Report Type: 
  Country: US (occurrence: US)
  Receive Date: 20121128
  Receipt Date: 20121128
  Transmission Date: 20130627
  Serious: Yes (Other)
  Sender: FDA-Public Use
  Company Number: US-ASTRAZENECA-2012SE87797

PATIENT
  Age: 59 Year
  Sex: Female
  Weight: 103.4 kg

DRUGS (5)
  1. NEXIUM [Suspect]
     Indication: GASTROOESOPHAGEAL REFLUX DISEASE
     Route: 048
     Dates: start: 2000
  2. METOPROLOL [Suspect]
     Route: 048
     Dates: start: 2010
  3. SUDAFED [Concomitant]
     Dates: start: 20121112
  4. FIORCET [Concomitant]
     Dates: start: 20121112
  5. PROZAC [Concomitant]
     Dates: start: 20121105

REACTIONS (8)
  - Breast cancer [Not Recovered/Not Resolved]
  - Intervertebral disc degeneration [Not Recovered/Not Resolved]
  - Staphylococcal infection [Recovering/Resolving]
  - Thrombosis [Unknown]
  - Atrial fibrillation [Not Recovered/Not Resolved]
  - Exostosis [Unknown]
  - Oesophageal stenosis [Unknown]
  - Drug dose omission [Unknown]
